FAERS Safety Report 22585301 (Version 1)
Quarter: 2023Q2

REPORT INFORMATION
  Report Type: Spontaneous
  Country: None (occurrence: US)
  Receive Date: 20230610
  Receipt Date: 20230610
  Transmission Date: 20230722
  Serious: No
  Sender: FDA-Public Use
  Company Number: US-WES Pharma Inc-2142550

PATIENT
  Sex: Female

DRUGS (1)
  1. HYDROCODONE BITARTRATE AND ACETAMINOPHEN [Suspect]
     Active Substance: ACETAMINOPHEN\HYDROCODONE BITARTRATE
     Indication: Pain
     Route: 065

REACTIONS (4)
  - Product use complaint [Unknown]
  - Product physical issue [Unknown]
  - Intentional dose omission [Unknown]
  - Wrong technique in product usage process [Unknown]
